FAERS Safety Report 7936715-8 (Version None)
Quarter: 2011Q4

REPORT INFORMATION
  Report Type: 
  Country: None (occurrence: None)
  Receive Date: 20111121
  Receipt Date: 20111107
  Transmission Date: 20120403
  Serious: Yes (Other)
  Sender: FDA-Public Use
  Company Number: 2011029936

PATIENT
  Age: 59 Year
  Sex: Female
  Weight: 136.5327 kg

DRUGS (14)
  1. KLOR-CON [Concomitant]
  2. OMEPRAZOLE [Concomitant]
  3. HIZENTRA [Suspect]
  4. EFFEXOR [Concomitant]
  5. ALDACTONE [Concomitant]
  6. LASIX [Concomitant]
  7. HIZENTRA (IMMUNOGLOBULIN HUMAM NORMAL) [Concomitant]
  8. LOSARTAN POTASSIUM [Concomitant]
  9. DICLOFENAC SODIUM [Concomitant]
  10. HIZENTRA [Suspect]
     Indication: IMMUNODEFICIENCY COMMON VARIABLE
     Dosage: 17 G 1X/WEEK, 1 GM 5 ML VIAL; 85 ML WEEKLY IN 4-6 SITES OVER 2-2.5 HOURS, 4 GM 20 ML VIAL, SUBCUTANE
     Route: 058
     Dates: start: 20110928
  11. SINGULAIR [Concomitant]
  12. NEURONTIN [Concomitant]
  13. HIZENTRA (IMMUNOGLOBULIN HUMAM NORMAL) [Concomitant]
  14. ZETIA [Concomitant]

REACTIONS (3)
  - MUSCULOSKELETAL STIFFNESS [None]
  - INFUSION SITE PRURITUS [None]
  - URINARY TRACT INFECTION [None]
